FAERS Safety Report 16876848 (Version 1)
Quarter: 2019Q4

REPORT INFORMATION
  Report Type: Spontaneous
  Country: US (occurrence: US)
  Receive Date: 20191002
  Receipt Date: 20191002
  Transmission Date: 20200122
  Serious: Yes (Other)
  Sender: FDA-Public Use
  Company Number: US-BAYER-2019-174518

PATIENT
  Sex: Male

DRUGS (1)
  1. AFRIN ORIGINAL [Suspect]
     Active Substance: OXYMETAZOLINE HYDROCHLORIDE
     Indication: RHINITIS
     Dosage: UNK
     Dates: start: 1999

REACTIONS (3)
  - Inappropriate schedule of product administration [Unknown]
  - Nasal congestion [Unknown]
  - Drug dependence [Unknown]
